FAERS Safety Report 6266543-3 (Version None)
Quarter: 2009Q3

REPORT INFORMATION
  Report Type: 
  Country: None (occurrence: None)
  Receive Date: 20090713
  Receipt Date: 20090629
  Transmission Date: 20100115
  Serious: Yes (Hospitalization)
  Sender: FDA-Public Use
  Company Number: KR-MERCK-0907KOR00001

PATIENT
  Age: 68 Year
  Sex: Male
  Weight: 69 kg

DRUGS (9)
  1. HYZAAR [Suspect]
     Indication: HYPERTENSION
     Route: 048
     Dates: start: 20080209
  2. CLOPIDOGREL BISULFATE [Concomitant]
     Indication: ARTERIOSCLEROSIS
     Route: 048
     Dates: start: 20080223, end: 20090301
  3. AMLODIPINE BESYLATE [Concomitant]
     Indication: HYPERTENSION
     Route: 048
     Dates: start: 20080229, end: 20090301
  4. INSULIN GLARGINE [Concomitant]
     Indication: DIABETES MELLITUS
     Route: 065
     Dates: start: 20080314
  5. ASPIRIN [Concomitant]
     Indication: HYPERLIPIDAEMIA
     Route: 048
     Dates: start: 20080223
  6. HYDROCHLOROTHIAZIDE AND VALSARTAN [Concomitant]
     Indication: HYPERTENSION
     Route: 048
     Dates: start: 20080223, end: 20090329
  7. GREPAFLOXACIN HYDROCHLORIDE [Concomitant]
     Indication: HYPERTENSION
     Route: 048
     Dates: start: 20080223
  8. ATENOLOL [Concomitant]
     Indication: HYPERTENSION
     Route: 048
     Dates: start: 20080223, end: 20090301
  9. ATENOLOL [Concomitant]
     Route: 048
     Dates: start: 20080314

REACTIONS (1)
  - HIP FRACTURE [None]
